FAERS Safety Report 8438124-4 (Version None)
Quarter: 2012Q2

REPORT INFORMATION
  Report Type: 
  Country: None (occurrence: None)
  Receive Date: 20120614
  Receipt Date: 20120611
  Transmission Date: 20120825
  Serious: Yes (Hospitalization, Other)
  Sender: FDA-Public Use
  Company Number: US-ROCHE-797039

PATIENT
  Sex: Female
  Weight: 94.3 kg

DRUGS (19)
  1. CLONAZEPAM [Concomitant]
     Dates: start: 19850615
  2. LASIX [Concomitant]
  3. ARAVA [Concomitant]
     Dates: start: 19950615, end: 20110730
  4. VERAPAMIL [Concomitant]
  5. NORCO [Concomitant]
     Dosage: 5/75 MG DAILY
  6. ASCORBIC ACID [Concomitant]
     Dosage: 1 UNIT
     Dates: start: 20080615, end: 20110715
  7. CALCIUM [Concomitant]
     Dosage: 1 UNIT
  8. METHOTREXATE [Suspect]
     Indication: METASTATIC MALIGNANT MELANOMA
     Dosage: 25
     Dates: start: 20110731, end: 20110915
  9. ATIVAN [Concomitant]
  10. AMLODIPINE [Concomitant]
     Dates: start: 20080615, end: 20110830
  11. FISH OIL [Concomitant]
     Dosage: 1 UNIT
  12. CYMBALTA [Concomitant]
  13. LOSARTAN POTASSIUM [Concomitant]
     Dates: start: 20080615, end: 20110830
  14. AMITRIPTYLINE HCL [Concomitant]
     Dates: start: 19850615
  15. MULTI-VITAMIN [Concomitant]
     Dosage: 1
     Dates: start: 20000615
  16. VEMURAFENIB [Suspect]
     Indication: METASTATIC MALIGNANT MELANOMA
     Dosage: DATE OF LAST DOSE PRIOR TO SAE: 20/MAR/2012
     Route: 048
  17. POTASSIUM SODIUM HYDROGEN CITRATE [Concomitant]
     Dosage: FREQUENCY: 1
     Dates: start: 20080615, end: 20110322
  18. NEXIUM [Concomitant]
  19. TOPAMAX [Concomitant]

REACTIONS (4)
  - PNEUMONIA [None]
  - BRONCHITIS [None]
  - PANCYTOPENIA [None]
  - CARDIAC FAILURE ACUTE [None]
